FAERS Safety Report 20041339 (Version 1)
Quarter: 2021Q4

REPORT INFORMATION
  Report Type: Spontaneous
  Country: IN (occurrence: IN)
  Receive Date: 20211107
  Receipt Date: 20211107
  Transmission Date: 20220303
  Serious: Yes (Hospitalization)
  Sender: FDA-Public Use
  Company Number: IN-STRIDES ARCOLAB LIMITED-2021SP029390

PATIENT
  Age: 20 Year
  Sex: Male

DRUGS (2)
  1. CYPROHEPTADINE [Interacting]
     Active Substance: CYPROHEPTADINE
     Indication: Muscle building therapy
     Dosage: 4 MILLIGRAM, BID (8MG IN TWO DIVIDED DOSES)
     Route: 065
  2. DEXAMETHASONE [Interacting]
     Active Substance: DEXAMETHASONE
     Indication: Muscle building therapy
     Dosage: 0.5 MILLIGRAM, BID
     Route: 065

REACTIONS (5)
  - Obsessive-compulsive symptom [Recovered/Resolved]
  - Suicide attempt [Recovered/Resolved]
  - Drug abuse [Unknown]
  - Drug interaction [Unknown]
  - Off label use [Unknown]
